FAERS Safety Report 5729103-6 (Version None)
Quarter: 2008Q2

REPORT INFORMATION
  Report Type: 
  Country: None (occurrence: None)
  Receive Date: 20080501
  Receipt Date: 20080418
  Transmission Date: 20081010
  Serious: Yes (Hospitalization)
  Sender: FDA-Public Use
  Company Number: 2008-02568

PATIENT
  Age: 49 Year
  Sex: Female

DRUGS (4)
  1. FORTAMET [Suspect]
     Indication: TYPE 2 DIABETES MELLITUS
     Dosage: DOSE FOR 3 WEEKS,
     Dates: start: 20080101
  2. NIFEDIPINE [Concomitant]
  3. SODIUM BICARBONATE IN PLASTIC CONTAINER [Concomitant]
  4. SEVELAMER (SEVELAMER) [Concomitant]

REACTIONS (3)
  - HAEMODIALYSIS [None]
  - LACTIC ACIDOSIS [None]
  - MYOCARDIAL INFARCTION [None]
